FAERS Safety Report 15148137 (Version 5)
Quarter: 2018Q3

REPORT INFORMATION
  Report Type: Report from Study
  Country: JP (occurrence: JP)
  Receive Date: 20180716
  Receipt Date: 20180911
  Transmission Date: 20181010
  Serious: Yes (Hospitalization)
  Sender: FDA-Public Use
  Company Number: JP-ROCHE-2154343

PATIENT
  Age: 46 Year
  Sex: Female
  Weight: 44.7 kg

DRUGS (23)
  1. ZANTAC [Concomitant]
     Active Substance: RANITIDINE HYDROCHLORIDE
     Indication: PREMEDICATION
     Route: 065
     Dates: start: 20180626
  2. DECADRON [Concomitant]
     Active Substance: DEXAMETHASONE
     Indication: PREMEDICATION
     Route: 042
     Dates: start: 20180626, end: 20180626
  3. AZUNOL OINTMENT [Concomitant]
     Indication: CHEILITIS
     Route: 065
     Dates: start: 20180710
  4. ANTEBATE [Concomitant]
     Active Substance: BETAMETHASONE DIPROPIONATE
     Indication: ERYTHEMA MULTIFORME
     Route: 050
     Dates: start: 20180711, end: 20180718
  5. LOXONIN PAP [Concomitant]
     Indication: ABDOMINAL PAIN
     Route: 065
     Dates: start: 20180626
  6. MUCOSTA [Concomitant]
     Active Substance: REBAMIPIDE
     Indication: ABDOMINAL PAIN
     Route: 065
     Dates: start: 20180626
  7. GASMOTIN [Concomitant]
     Active Substance: MOSAPRIDE CITRATE
     Indication: ABDOMINAL PAIN
     Route: 065
     Dates: start: 20180608
  8. LOCOID [Concomitant]
     Active Substance: HYDROCORTISONE BUTYRATE
     Indication: ERYTHEMA MULTIFORME
     Route: 050
     Dates: start: 20180711, end: 20180718
  9. TRANEXAMIC ACID. [Concomitant]
     Active Substance: TRANEXAMIC ACID
     Indication: ERYTHEMA MULTIFORME
     Route: 065
     Dates: start: 20180712
  10. PYDOXAL [Concomitant]
     Active Substance: PYRIDOXAL
     Indication: ERYTHEMA MULTIFORME
     Route: 065
     Dates: start: 20180716
  11. PACLITAXEL. [Suspect]
     Active Substance: PACLITAXEL
     Indication: OVARIAN CANCER
     Dosage: AS PER PROTOCOL?MOST RECENT DOSE OF PACLITAXEL PRIOR TO SAE ONSET (253 MG)
     Route: 042
     Dates: start: 20180626
  12. XYLOCAINE [Concomitant]
     Active Substance: LIDOCAINE HYDROCHLORIDE
     Indication: ASCITES
     Route: 065
     Dates: start: 20180627, end: 20180627
  13. ATEZOLIZUMAB. [Suspect]
     Active Substance: ATEZOLIZUMAB
     Indication: OVARIAN CANCER
     Dosage: MOST RECENT DOSE OF BLINDED ATEZOLIZUMAB PRIOR TO SAE ONSET
     Route: 042
     Dates: start: 20180626
  14. BIOFERMIN R [Concomitant]
     Active Substance: BACILLUS SUBTILIS\LACTOBACILLUS ACIDOPHILUS\STREPTOCOCCUS FAECAIS
     Indication: CONSTIPATION
     Route: 065
     Dates: start: 20180608
  15. ALOXI [Concomitant]
     Active Substance: PALONOSETRON HYDROCHLORIDE
     Indication: PREMEDICATION
     Route: 065
     Dates: start: 20180626
  16. MUCOSTA [Concomitant]
     Active Substance: REBAMIPIDE
     Indication: ABDOMINAL PAIN
     Route: 065
     Dates: start: 20180626
  17. CARBOPLATIN. [Suspect]
     Active Substance: CARBOPLATIN
     Indication: OVARIAN CANCER
     Dosage: AREA UNDER THE CURVE (AUC) OF 6 MG/MLXMIN AS PER PROTOCOL?MOST RECENT DOSE OF CARBOPLATIN PRIOR TO S
     Route: 042
     Dates: start: 20180626
  18. MAGNESIUM OXIDE. [Concomitant]
     Active Substance: MAGNESIUM OXIDE
     Indication: CONSTIPATION
     Route: 065
     Dates: start: 20180608
  19. NEORESTAR [Concomitant]
     Indication: PREMEDICATION
     Route: 065
     Dates: start: 20180626
  20. PRIMPERAN [Concomitant]
     Active Substance: METOCLOPRAMIDE HYDROCHLORIDE
     Route: 065
     Dates: start: 20180627
  21. ALLELOCK [Concomitant]
     Active Substance: OLOPATADINE HYDROCHLORIDE
     Indication: ERYTHEMA MULTIFORME
     Route: 065
     Dates: start: 20180711, end: 20180716
  22. DEXALTIN [Concomitant]
     Active Substance: DEXAMETHASONE
     Indication: STOMATITIS
     Route: 065
     Dates: start: 20180716
  23. AZUNOL OINTMENT [Concomitant]
     Indication: OROPHARYNGEAL PAIN
     Route: 065
     Dates: start: 20180711

REACTIONS (2)
  - Febrile neutropenia [Recovered/Resolved]
  - Pyrexia [Recovered/Resolved]

NARRATIVE: CASE EVENT DATE: 20180706
